FAERS Safety Report 12211178 (Version 1)
Quarter: 2016Q1

REPORT INFORMATION
  Report Type: Spontaneous
  Country: US (occurrence: None)
  Receive Date: 20160324
  Receipt Date: 20160324
  Transmission Date: 20160526
  Serious: Yes (Other)
  Sender: FDA-Public Use
  Company Number: None

PATIENT
  Age: 66 Year
  Sex: Male
  Weight: 108.2 kg

DRUGS (1)
  1. PRAZOSIN [Suspect]
     Active Substance: PRAZOSIN
     Indication: MENTAL DISORDER
     Route: 048
     Dates: start: 20120601, end: 20160210

REACTIONS (4)
  - Headache [None]
  - Pruritus [None]
  - Loss of consciousness [None]
  - Urticaria [None]

NARRATIVE: CASE EVENT DATE: 20160208
